FAERS Safety Report 5948134-4 (Version None)
Quarter: 2008Q4

REPORT INFORMATION
  Report Type: 
  Country: None (occurrence: None)
  Receive Date: 20081111
  Receipt Date: 20081106
  Transmission Date: 20090506
  Serious: Yes (Death, Other)
  Sender: FDA-Public Use
  Company Number: US-ROCHE-571705

PATIENT
  Sex: Female
  Weight: 47.6 kg

DRUGS (6)
  1. CAPECITABINE [Suspect]
     Dosage: FREQUENCY: IN MORNING AND IN EVENING
     Route: 048
     Dates: start: 20080529
  2. ASPIRIN [Concomitant]
  3. COREG [Concomitant]
  4. LIPITOR [Concomitant]
  5. VITAMIN E [Concomitant]
  6. CALCIUM [Concomitant]

REACTIONS (2)
  - DEATH [None]
  - DIARRHOEA HAEMORRHAGIC [None]
